FAERS Safety Report 14985883 (Version 1)
Quarter: 2018Q2

REPORT INFORMATION
  Report Type: Spontaneous
  Country: US (occurrence: US)
  Receive Date: 20180516
  Receipt Date: 20180516
  Transmission Date: 20180711
  Serious: Yes (Hospitalization)
  Sender: FDA-Public Use
  Company Number: None

PATIENT
  Age: 69 Year
  Sex: Female

DRUGS (7)
  1. ASPRIN [Concomitant]
     Active Substance: ASPIRIN
  2. COSENTYX [Suspect]
     Active Substance: SECUKINUMAB
     Indication: PSORIASIS
     Dosage: ?          OTHER FREQUENCY:E4W;?
     Route: 058
     Dates: start: 20180206, end: 201805
  3. LISINOP/HC [Concomitant]
  4. ARMOUR THYRO [Concomitant]
  5. CIPROFLOXACN [Concomitant]
     Active Substance: CIPROFLOXACIN
  6. TRAMADOL HCL [Concomitant]
     Active Substance: TRAMADOL HYDROCHLORIDE
  7. HYDROCO/APAP [Concomitant]
     Active Substance: ACETAMINOPHEN\HYDROCODONE

REACTIONS (1)
  - Hip surgery [None]

NARRATIVE: CASE EVENT DATE: 20180409
